FAERS Safety Report 8313018-3 (Version None)
Quarter: 2012Q2

REPORT INFORMATION
  Report Type: 
  Country: None (occurrence: None)
  Receive Date: 20120426
  Receipt Date: 20120417
  Transmission Date: 20120825
  Serious: Yes (Other)
  Sender: FDA-Public Use
  Company Number: US-CELGENEUS-163-20785-12041993

PATIENT
  Sex: Male
  Weight: 65 kg

DRUGS (1)
  1. THALOMID [Suspect]
     Indication: MULTIPLE MYELOMA
     Route: 048
     Dates: start: 20030801, end: 20070901

REACTIONS (2)
  - CARDIOVASCULAR DISORDER [None]
  - NEUROPATHY PERIPHERAL [None]
